FAERS Safety Report 5970406-8 (Version None)
Quarter: 2008Q4

REPORT INFORMATION
  Report Type: 
  Country: None (occurrence: None)
  Receive Date: 20081126
  Receipt Date: 20081028
  Transmission Date: 20090506
  Serious: No
  Sender: FDA-Public Use
  Company Number: US-ABBOTT-08P-163-0484632-00

PATIENT
  Sex: Male

DRUGS (3)
  1. SIMCOR [Suspect]
     Indication: BLOOD CHOLESTEROL INCREASED
     Dosage: 1 - 500/20MG TABLET DAILY AT BEDTIME
     Route: 048
  2. PARACETAMOL [Concomitant]
     Indication: PAIN
     Route: 048
  3. 6 UNKNOWN MEDICATIONS PATIENT UNABLE TO REPORT [Concomitant]
     Indication: DRUG USE FOR UNKNOWN INDICATION

REACTIONS (1)
  - MYALGIA [None]
